FAERS Safety Report 21973230 (Version 2)
Quarter: 2023Q2

REPORT INFORMATION
  Report Type: Spontaneous
  Country: US (occurrence: US)
  Receive Date: 20230209
  Receipt Date: 20230505
  Transmission Date: 20230722
  Serious: No
  Sender: FDA-Public Use
  Company Number: US-SA-SAC20230207001521

PATIENT
  Sex: Female

DRUGS (2)
  1. AUBAGIO [Suspect]
     Active Substance: TERIFLUNOMIDE
     Indication: Multiple sclerosis
     Dosage: UNK
     Route: 048
  2. VUMERITY [Concomitant]
     Active Substance: DIROXIMEL FUMARATE
     Dosage: UNK

REACTIONS (9)
  - Muscular weakness [Unknown]
  - Product dose omission issue [Unknown]
  - Vomiting [Unknown]
  - Memory impairment [Unknown]
  - Gait disturbance [Unknown]
  - Pruritus [Unknown]
  - Blood glucose decreased [Unknown]
  - Bradyphrenia [Unknown]
  - Nausea [Unknown]
